FAERS Safety Report 16534466 (Version 1)
Quarter: 2019Q3

REPORT INFORMATION
  Report Type: Spontaneous
  Country: US (occurrence: US)
  Receive Date: 20190704
  Receipt Date: 20190704
  Transmission Date: 20191004
  Serious: No
  Sender: FDA-Public Use
  Company Number: None

PATIENT
  Age: 60 Year
  Sex: Female
  Weight: 60.75 kg

DRUGS (15)
  1. ESTROGEN CREAM (ESTRADIOL) [Concomitant]
     Active Substance: ESTRADIOL
  2. LEVOTHYROXINE. [Concomitant]
     Active Substance: LEVOTHYROXINE
  3. MELATONIN [Concomitant]
     Active Substance: MELATONIN
  4. VITAMIN C [Concomitant]
     Active Substance: ASCORBIC ACID
  5. EQUATE COMFORT [Suspect]
     Active Substance: CARBOXYMETHYLCELLULOSE SODIUM\HYPROMELLOSES
     Indication: DRY EYE
     Dosage: ?          QUANTITY:15 DROPS AS NEEDED;?
     Route: 047
     Dates: start: 20190626, end: 20190627
  6. VITAMIN D3 [Concomitant]
     Active Substance: CHOLECALCIFEROL
  7. RANITIDINE. [Concomitant]
     Active Substance: RANITIDINE
  8. ZINC. [Concomitant]
     Active Substance: ZINC
  9. PSYLLIUM HUSK CAPSULES [Concomitant]
  10. TESTOSTERONE CREAM [Concomitant]
     Active Substance: TESTOSTERONE
  11. CALCIUM CITRATE [Concomitant]
     Active Substance: CALCIUM CITRATE
  12. MAGNESIUM CITRATE. [Concomitant]
     Active Substance: MAGNESIUM CITRATE
  13. FLAX OIL [Concomitant]
  14. AMITRIPTYLINE LOW DOSE [Concomitant]
  15. LUTEIN [Concomitant]
     Active Substance: LUTEIN

REACTIONS (2)
  - Ocular discomfort [None]
  - Eye irritation [None]

NARRATIVE: CASE EVENT DATE: 20190626
